FAERS Safety Report 15861405 (Version 1)
Quarter: 2019Q1

REPORT INFORMATION
  Report Type: Spontaneous
  Country: BR (occurrence: BR)
  Receive Date: 20190124
  Receipt Date: 20190124
  Transmission Date: 20190417
  Serious: Yes (Death)
  Sender: FDA-Public Use
  Company Number: BR-ROCHE-2249918

PATIENT
  Age: 61 Year
  Sex: Female

DRUGS (1)
  1. XELODA [Suspect]
     Active Substance: CAPECITABINE
     Indication: BREAST CANCER
     Route: 048
     Dates: start: 20181211, end: 20181216

REACTIONS (8)
  - Decreased appetite [Unknown]
  - Jaundice [Fatal]
  - Deficiency of bile secretion [Unknown]
  - Choluria [Unknown]
  - Abdominal pain [Unknown]
  - Nausea [Fatal]
  - Mucosal inflammation [Fatal]
  - Confusional state [Fatal]

NARRATIVE: CASE EVENT DATE: 20181212
